FAERS Safety Report 12627113 (Version 5)
Quarter: 2016Q4

REPORT INFORMATION
  Report Type: Spontaneous
  Country: US (occurrence: US)
  Receive Date: 20160805
  Receipt Date: 20161118
  Transmission Date: 20170207
  Serious: Yes (Hospitalization)
  Sender: FDA-Public Use
  Company Number: US-ACTELION-A-US2016-140164

PATIENT
  Age: 48 Year
  Sex: Male

DRUGS (8)
  1. COUMADIN [Concomitant]
     Active Substance: WARFARIN SODIUM
  2. FUROSEMIDE. [Concomitant]
     Active Substance: FUROSEMIDE
  3. MUCINEX [Concomitant]
     Active Substance: GUAIFENESIN
  4. ALDACTONE [Concomitant]
     Active Substance: SPIRONOLACTONE
  5. PREDNISONE. [Concomitant]
     Active Substance: PREDNISONE
  6. LANOXIN [Concomitant]
     Active Substance: DIGOXIN
  7. LEVOTHYROXINE. [Concomitant]
     Active Substance: LEVOTHYROXINE
  8. VELETRI [Suspect]
     Active Substance: EPOPROSTENOL
     Indication: PULMONARY HYPERTENSION
     Dosage: 25 NG/KG, PER MIN
     Route: 042
     Dates: start: 20111117

REACTIONS (11)
  - Vomiting [Unknown]
  - Nausea [Unknown]
  - Catheter site extravasation [Recovered/Resolved]
  - Device related sepsis [Unknown]
  - Pyrexia [Unknown]
  - Diarrhoea [Unknown]
  - Night sweats [Unknown]
  - Catheter placement [Recovered/Resolved]
  - Staphylococcal infection [Recovered/Resolved]
  - Device related infection [Unknown]
  - Chills [Unknown]

NARRATIVE: CASE EVENT DATE: 201607
